FAERS Safety Report 9411887 (Version 1)
Quarter: 2013Q3

REPORT INFORMATION
  Report Type: Report from Study
  Country: AU (occurrence: AU)
  Receive Date: 20130722
  Receipt Date: 20130722
  Transmission Date: 20140515
  Serious: Yes (Hospitalization)
  Sender: FDA-Public Use
  Company Number: PHHY2013AU077251

PATIENT
  Age: 87 Year
  Sex: Female

DRUGS (3)
  1. ACLASTA [Suspect]
     Dosage: UNK
     Route: 042
     Dates: start: 20100527
  2. ACLASTA [Suspect]
     Dosage: UNK
     Route: 042
     Dates: start: 20110707
  3. ACLASTA [Suspect]
     Dosage: UNK
     Route: 042
     Dates: start: 20120718

REACTIONS (2)
  - Epistaxis [Recovering/Resolving]
  - Malaise [Recovering/Resolving]
